FAERS Safety Report 7219419-9 (Version None)
Quarter: 2011Q1

REPORT INFORMATION
  Report Type: 
  Country: None (occurrence: None)
  Receive Date: 20110111
  Receipt Date: 20110105
  Transmission Date: 20110831
  Serious: Yes (Death)
  Sender: FDA-Public Use
  Company Number: US-AMGEN-USASP2011000741

PATIENT

DRUGS (1)
  1. ENBREL [Suspect]

REACTIONS (1)
  - LUNG NEOPLASM MALIGNANT [None]
